FAERS Safety Report 7427864-1 (Version None)
Quarter: 2011Q2

REPORT INFORMATION
  Report Type: 
  Country: None (occurrence: None)
  Receive Date: 20110421
  Receipt Date: 20110406
  Transmission Date: 20111010
  Serious: Yes (Other)
  Sender: FDA-Public Use
  Company Number: US-CELGENEUS-163-21880-11040845

PATIENT
  Sex: Male
  Weight: 67.192 kg

DRUGS (12)
  1. PERCOCET [Concomitant]
     Route: 048
  2. GABAPENTIN [Concomitant]
     Route: 048
  3. LANTUS [Concomitant]
     Route: 058
  4. NOVOLOG [Concomitant]
     Route: 058
  5. LORTAB [Concomitant]
     Route: 048
  6. HYDROCHLOROTHIAZIDE [Concomitant]
     Route: 048
  7. COREG [Concomitant]
     Route: 048
  8. HYDRALAZINE [Concomitant]
     Route: 048
  9. CYANOCOBALAMIN [Concomitant]
     Route: 030
  10. DEXAMETHASONE [Concomitant]
     Dosage: 20 MILLIGRAM
     Route: 048
     Dates: start: 20110301
  11. ENALAPRIL MALEATE [Concomitant]
     Route: 048
  12. REVLIMID [Suspect]
     Indication: MULTIPLE MYELOMA
     Dosage: 15 MILLIGRAM
     Route: 048
     Dates: start: 20110314

REACTIONS (1)
  - BLOOD GLUCOSE INCREASED [None]
